FAERS Safety Report 5629410-1 (Version None)
Quarter: 2008Q1

REPORT INFORMATION
  Report Type: 
  Country: None (occurrence: None)
  Receive Date: 20080215
  Receipt Date: 20080215
  Transmission Date: 20080703
  Serious: No
  Sender: FDA-Public Use
  Company Number: None

PATIENT
  Age: 53 Year
  Sex: Female
  Weight: 44.2 kg

DRUGS (3)
  1. REVLIMID [Suspect]
     Indication: MULTIPLE MYELOMA
     Dosage: 25MG QD PO
     Route: 048
  2. DECADRON [Concomitant]
  3. ASPIRIN [Concomitant]

REACTIONS (3)
  - COLITIS [None]
  - CONSTIPATION [None]
  - RECTAL HAEMORRHAGE [None]
